FAERS Safety Report 25137655 (Version 2)
Quarter: 2025Q2

REPORT INFORMATION
  Report Type: Report from Study
  Country: CA (occurrence: CA)
  Receive Date: 20250329
  Receipt Date: 20250404
  Transmission Date: 20250717
  Serious: Yes (Death)
  Sender: ABBVIE
  Company Number: CA-ABBVIE-6202977

PATIENT
  Age: 79 Year
  Sex: Male

DRUGS (35)
  1. VENETOCLAX [Suspect]
     Active Substance: VENETOCLAX
     Indication: Acute myeloid leukaemia
     Route: 048
     Dates: start: 20241101, end: 20241101
  2. VENETOCLAX [Suspect]
     Active Substance: VENETOCLAX
     Indication: Acute myeloid leukaemia
     Route: 048
     Dates: start: 20241102, end: 20241102
  3. VENETOCLAX [Suspect]
     Active Substance: VENETOCLAX
     Indication: Acute myeloid leukaemia
     Route: 048
     Dates: start: 20241103, end: 20241129
  4. VENETOCLAX [Suspect]
     Active Substance: VENETOCLAX
     Indication: Acute myeloid leukaemia
     Route: 048
     Dates: start: 20241209, end: 20241230
  5. VENETOCLAX [Suspect]
     Active Substance: VENETOCLAX
     Indication: Acute myeloid leukaemia
     Route: 048
     Dates: start: 20250131, end: 20250214
  6. EZETIMIBE [Concomitant]
     Active Substance: EZETIMIBE
     Indication: Blood cholesterol abnormal
     Route: 048
  7. CHOLECALCIFEROL [Concomitant]
     Active Substance: CHOLECALCIFEROL
     Indication: Routine health maintenance
     Dosage: DOSE: 2000 UNIS
     Route: 048
  8. LORATADINE [Concomitant]
     Active Substance: LORATADINE
     Indication: Multiple allergies
     Route: 048
  9. ACETAMINOPHEN [Concomitant]
     Active Substance: ACETAMINOPHEN
     Indication: Pain
     Route: 048
  10. ARTIFICIAL TEARS [Concomitant]
     Indication: Dry eye
  11. FLUTICASONE [Concomitant]
     Active Substance: FLUTICASONE
     Indication: Pneumonia
     Dosage: 100 MCG/INH?DOSE: 1 INHAL
     Route: 055
     Dates: start: 202411
  12. TAMSULOSIN [Concomitant]
     Active Substance: TAMSULOSIN
     Indication: Benign prostatic hyperplasia
     Route: 048
     Dates: start: 202411
  13. APIXABAN [Concomitant]
     Active Substance: APIXABAN
     Indication: Atrial fibrillation
     Route: 048
     Dates: start: 2024
  14. METOPROLOL [Concomitant]
     Active Substance: METOPROLOL
     Indication: Atrial fibrillation
     Route: 048
     Dates: start: 202411
  15. HYDROMORPHONE [Concomitant]
     Active Substance: HYDROMORPHONE
     Indication: Pain
     Route: 048
     Dates: start: 202411
  16. CLOTRIMAZOLE [Concomitant]
     Active Substance: CLOTRIMAZOLE
     Indication: Osteomyelitis fungal
     Dosage: 10%
     Route: 061
     Dates: start: 202411
  17. VALACYCLOVIR [Concomitant]
     Active Substance: VALACYCLOVIR HYDROCHLORIDE
     Indication: Antiviral prophylaxis
     Route: 048
     Dates: start: 20241101
  18. FLUCONAZOLE [Concomitant]
     Active Substance: FLUCONAZOLE
     Indication: Antifungal prophylaxis
     Route: 048
     Dates: start: 20241101
  19. CEFIXIME [Concomitant]
     Active Substance: CEFIXIME
     Indication: Infection prophylaxis
     Route: 048
     Dates: start: 20241119
  20. LEVOFLOXACIN [Concomitant]
     Active Substance: LEVOFLOXACIN
     Indication: Pneumonia aspiration
     Dates: start: 20241109, end: 20241109
  21. CEFTRIAXONE [Concomitant]
     Active Substance: CEFTRIAXONE
     Indication: Pneumonia aspiration
     Dates: start: 20241102, end: 20241109
  22. PIPERACILLIN AND TAZOBACTAM [Concomitant]
     Active Substance: PIPERACILLIN SODIUM\TAZOBACTAM SODIUM
     Indication: Febrile neutropenia
     Dosage: DOSING FREQUENCY: Q 6 HRS FOR 7 DAYS
     Route: 042
     Dates: start: 20250306, end: 20250306
  23. OCULAR LUBRICANT [Concomitant]
     Indication: Dry eye
     Dates: start: 20250306, end: 20250306
  24. AZACITIDINE [Suspect]
     Active Substance: AZACITIDINE
     Indication: Acute myeloid leukaemia
     Route: 065
     Dates: start: 20241101, end: 20241107
  25. AZACITIDINE [Suspect]
     Active Substance: AZACITIDINE
     Indication: Acute myeloid leukaemia
     Route: 065
     Dates: start: 20241209, end: 20241209
  26. AZACITIDINE [Suspect]
     Active Substance: AZACITIDINE
     Indication: Acute myeloid leukaemia
     Route: 065
     Dates: start: 20241210, end: 20241217
  27. AZACITIDINE [Suspect]
     Active Substance: AZACITIDINE
     Indication: Acute myeloid leukaemia
     Route: 065
     Dates: start: 20250203, end: 20250204
  28. AZACITIDINE [Suspect]
     Active Substance: AZACITIDINE
     Indication: Acute myeloid leukaemia
     Route: 065
     Dates: start: 20250206, end: 20250207
  29. AZACITIDINE [Suspect]
     Active Substance: AZACITIDINE
     Indication: Acute myeloid leukaemia
     Route: 065
     Dates: start: 20250210, end: 20250212
  30. SODIUM CHLORIDE [Concomitant]
     Active Substance: SODIUM CHLORIDE
     Indication: Hyponatraemia
     Route: 042
     Dates: start: 202411, end: 202411
  31. SACUBITRIL\VALSARTAN [Concomitant]
     Active Substance: SACUBITRIL\VALSARTAN
     Indication: Cardiac failure
     Route: 048
     Dates: end: 20250306
  32. ACETAMINOPHEN [Concomitant]
     Active Substance: ACETAMINOPHEN
     Indication: Febrile neutropenia
     Route: 048
     Dates: start: 20250305, end: 20250305
  33. AZITHROMYCIN [Concomitant]
     Active Substance: AZITHROMYCIN
     Indication: Febrile neutropenia
     Route: 042
     Dates: start: 20250305, end: 20250305
  34. CEFTAZIDIME [Concomitant]
     Active Substance: CEFTAZIDIME
     Indication: Febrile neutropenia
     Route: 042
     Dates: start: 20250305, end: 20250306
  35. CEFTRIAXONE [Concomitant]
     Active Substance: CEFTRIAXONE
     Indication: Febrile neutropenia
     Route: 042
     Dates: start: 20250305, end: 20250305

REACTIONS (1)
  - Disseminated intravascular coagulation [Fatal]

NARRATIVE: CASE EVENT DATE: 20250305
